FAERS Safety Report 7562515-7 (Version None)
Quarter: 2011Q2

REPORT INFORMATION
  Report Type: 
  Country: None (occurrence: None)
  Receive Date: 20110614
  Receipt Date: 20110608
  Transmission Date: 20111010
  Serious: Yes (Other)
  Sender: FDA-Public Use
  Company Number: 201110563

PATIENT

DRUGS (1)
  1. LIORESAL [Suspect]
     Indication: MUSCLE SPASTICITY
     Dosage: MCG, DAILY,  INTRATHECAL
     Route: 037

REACTIONS (2)
  - DEVICE CONNECTION ISSUE [None]
  - THERAPEUTIC RESPONSE DECREASED [None]
